FAERS Safety Report 7506087-1 (Version None)
Quarter: 2011Q2

REPORT INFORMATION
  Report Type: 
  Country: None (occurrence: None)
  Receive Date: 20110526
  Receipt Date: 20110520
  Transmission Date: 20111010
  Serious: Yes (Hospitalization)
  Sender: FDA-Public Use
  Company Number: IT-ROCHE-778603

PATIENT

DRUGS (1)
  1. XELODA [Suspect]
     Route: 065

REACTIONS (2)
  - PARAPLEGIA [None]
  - CARDIOMYOPATHY [None]
